FAERS Safety Report 14602871 (Version 1)
Quarter: 2018Q1

REPORT INFORMATION
  Report Type: Spontaneous
  Country: US (occurrence: US)
  Receive Date: 20180304
  Receipt Date: 20180304
  Transmission Date: 20180509
  Serious: Yes (Hospitalization)
  Sender: FDA-Public Use
  Company Number: None

PATIENT
  Age: 50 Year
  Sex: Male
  Weight: 75.2 kg

DRUGS (4)
  1. METHOTREXATE. [Suspect]
     Active Substance: METHOTREXATE
     Dates: end: 20180226
  2. MERCAPTOPURINE. [Suspect]
     Active Substance: MERCAPTOPURINE
     Dates: end: 20180228
  3. CYCLOPHOSPHAMIDE. [Suspect]
     Active Substance: CYCLOPHOSPHAMIDE
     Dates: end: 20180226
  4. CYTARABINE. [Suspect]
     Active Substance: CYTARABINE
     Dates: end: 20180228

REACTIONS (8)
  - Blood alkaline phosphatase increased [None]
  - Hyperbilirubinaemia [None]
  - Transaminases increased [None]
  - Blood bilirubin increased [None]
  - Hepatic enzyme increased [None]
  - Hepatotoxicity [None]
  - Drug-induced liver injury [None]
  - Therapy cessation [None]

NARRATIVE: CASE EVENT DATE: 20180302
